FAERS Safety Report 4724325-5 (Version None)
Quarter: 2005Q3

REPORT INFORMATION
  Report Type: 
  Country: None (occurrence: None)
  Receive Date: 20050726
  Receipt Date: 20050722
  Transmission Date: 20060218
  Serious: Yes (Other)
  Sender: FDA-Public Use
  Company Number: JP-RB-1898-2005

PATIENT
  Age: 2 Year
  Sex: Female

DRUGS (3)
  1. BUPRENORPHINE HCL [Suspect]
     Indication: SEDATIVE THERAPY
     Dosage: DOSE UNKNOWNROUTE = INJECTION
     Route: 065
  2. MIDAZOLAM HCL [Concomitant]
     Indication: DRUG USE FOR UNKNOWN INDICATION
     Dosage: DOSE UNKNOWN
     Route: 065
  3. MEDICINALPRODUCT NOT SPECIFIED BY SENDER [Concomitant]
     Indication: DRUG USE FOR UNKNOWN INDICATION
     Dosage: DOSE UNKNOWN
     Route: 065

REACTIONS (3)
  - CARDIOMYOPATHY [None]
  - DRUG WITHDRAWAL SYNDROME [None]
  - PATENT DUCTUS ARTERIOSUS [None]
